FAERS Safety Report 6597013-0 (Version None)
Quarter: 2010Q1

REPORT INFORMATION
  Report Type: 
  Country: None (occurrence: None)
  Receive Date: 20100223
  Receipt Date: 20100217
  Transmission Date: 20100710
  Serious: Yes (Hospitalization)
  Sender: FDA-Public Use
  Company Number: A0844950A

PATIENT
  Age: 75 Year
  Sex: Male

DRUGS (7)
  1. CARVEDILOL [Suspect]
     Indication: LEFT VENTRICULAR DYSFUNCTION
     Route: 048
     Dates: start: 20080101, end: 20080101
  2. SALT [Suspect]
  3. ZOCOR [Concomitant]
  4. LANOXIN [Concomitant]
  5. DIOVAN [Concomitant]
  6. COUMADIN [Concomitant]
  7. ASPIRIN [Concomitant]

REACTIONS (3)
  - DRUG INEFFECTIVE [None]
  - FLUID RETENTION [None]
  - MALAISE [None]
